FAERS Safety Report 4677000-X (Version None)
Quarter: 2005Q2

REPORT INFORMATION
  Report Type: 
  Country: None (occurrence: None)
  Receive Date: 20050526
  Receipt Date: 20050516
  Transmission Date: 20051028
  Serious: Yes (Hospitalization)
  Sender: FDA-Public Use
  Company Number: 2005076358

PATIENT
  Sex: Female

DRUGS (1)
  1. HYDROCORTISONE/OXYTETRACYCLINE (HYDROCORTISONE, OXYTETRACYCLINE) [Suspect]
     Indication: ILL-DEFINED DISORDER
     Dosage: TRANSDERMAL
     Route: 062

REACTIONS (2)
  - DERMATITIS CONTACT [None]
  - SKIN TEST POSITIVE [None]
